FAERS Safety Report 15293401 (Version 1)
Quarter: 2018Q3

REPORT INFORMATION
  Report Type: Spontaneous
  Country: US (occurrence: US)
  Receive Date: 20180820
  Receipt Date: 20180820
  Transmission Date: 20181010
  Serious: No
  Sender: FDA-Public Use
  Company Number: US-TEVA-798067ACC

PATIENT
  Sex: Female
  Weight: 62.65 kg

DRUGS (1)
  1. GLYBURIDE. [Suspect]
     Active Substance: GLYBURIDE
     Indication: DIABETES MELLITUS
     Dosage: STARTED AROUND THE TIME OF DIABETES DIAGNOSIS
     Dates: end: 201705

REACTIONS (2)
  - Drug tolerance [Unknown]
  - Drug ineffective [Unknown]
